FAERS Safety Report 4973694-X (Version None)
Quarter: 2006Q2

REPORT INFORMATION
  Report Type: 
  Country: None (occurrence: None)
  Receive Date: 20060414
  Receipt Date: 20030620
  Transmission Date: 20061013
  Serious: Yes (Congenital Anomaly)
  Sender: FDA-Public Use
  Company Number: FR-MERCK-0306FRA00084

PATIENT
  Age: 0 Day
  Sex: Female
  Weight: 4 kg

DRUGS (8)
  1. SINGULAIR [Suspect]
     Indication: ASTHMA
     Dates: start: 20020501, end: 20030602
  2. BAMBUTEROL [Concomitant]
     Indication: ASTHMA
  3. LORATADINE [Concomitant]
     Indication: RHINITIS ALLERGIC
  4. AMBROXOL HYDROCHLORIDE [Concomitant]
  5. BUDESONIDE [Concomitant]
  6. ALBUTEROL SULFATE [Concomitant]
     Indication: ASTHMA
  7. NITROFURANTOIN [Concomitant]
     Indication: URINARY TRACT INFECTION
     Dates: start: 20030708, end: 20030718
  8. PHLOROGLUCINOL AND TRIMETHYLPHLOROGLUCINOL [Concomitant]

REACTIONS (5)
  - CONGENITAL CYSTIC LUNG [None]
  - DRUG EXPOSURE DURING PREGNANCY [None]
  - PREGNANCY [None]
  - STRABISMUS [None]
  - URINARY TRACT INFECTION [None]
